FAERS Safety Report 21925404 (Version 1)
Quarter: 2023Q1

REPORT INFORMATION
  Report Type: Spontaneous
  Country: US (occurrence: None)
  Receive Date: 20230127
  Receipt Date: 20230127
  Transmission Date: 20230417
  Serious: No
  Sender: FDA-Public Use
  Company Number: None

PATIENT
  Sex: Female

DRUGS (1)
  1. ICATIBANT ACETATE [Suspect]
     Active Substance: ICATIBANT ACETATE
     Indication: Complement deficiency disease
     Dosage: 30/3 MG/ML AS NEEDED SUBCUTANEOUSLY? ?
     Route: 058
     Dates: start: 20191227

REACTIONS (3)
  - Unevaluable event [None]
  - Pancreatitis [None]
  - Condition aggravated [None]
